FAERS Safety Report 16033276 (Version 1)
Quarter: 2019Q1

REPORT INFORMATION
  Report Type: Spontaneous
  Country: US (occurrence: US)
  Receive Date: 20190305
  Receipt Date: 20190305
  Transmission Date: 20190418
  Serious: Yes (Other)
  Sender: FDA-Public Use
  Company Number: US-GLAXOSMITHKLINE-US2019GSK034857

PATIENT
  Age: 88 Year
  Sex: Male

DRUGS (10)
  1. CARVEDILOL. [Suspect]
     Active Substance: CARVEDILOL
     Indication: HYPERTENSION
     Dosage: 12.5 MG, QD
  2. BENICAR [Concomitant]
     Active Substance: OLMESARTAN MEDOXOMIL
  3. ELIGARD [Concomitant]
     Active Substance: LEUPROLIDE ACETATE
  4. VITAMIN D3 [Concomitant]
     Active Substance: CHOLECALCIFEROL
  5. SIMVASTATIN. [Concomitant]
     Active Substance: SIMVASTATIN
  6. ACETYLSALICYLIC ACID [Concomitant]
     Active Substance: ASPIRIN
  7. AMLODIPINE [Suspect]
     Active Substance: AMLODIPINE BESYLATE
  8. LORSARTAN MG SARTAL [Suspect]
     Active Substance: LOSARTAN
     Indication: HYPERTENSION
     Dosage: 50 MG, QD
     Route: 048
  9. XTANDI [Suspect]
     Active Substance: ENZALUTAMIDE
     Indication: PROSTATE CANCER
     Dosage: 160 MG, QD
     Route: 048
     Dates: start: 20180326, end: 20180329
  10. LEVOTHYROXIN [Concomitant]
     Active Substance: LEVOTHYROXINE

REACTIONS (12)
  - Tumour flare [Unknown]
  - Asthenia [Unknown]
  - Flushing [Unknown]
  - Respiratory tract infection [Unknown]
  - Dizziness [Unknown]
  - Eye infection [Unknown]
  - Productive cough [Unknown]
  - Sinusitis [Unknown]
  - Diarrhoea [Unknown]
  - Hypothyroidism [Unknown]
  - Decreased appetite [Unknown]
  - Feeling hot [Unknown]

NARRATIVE: CASE EVENT DATE: 201804
